FAERS Safety Report 7450612-6 (Version None)
Quarter: 2011Q2

REPORT INFORMATION
  Report Type: 
  Country: None (occurrence: None)
  Receive Date: 20110429
  Receipt Date: 20110429
  Transmission Date: 20111010
  Serious: Yes (Disabling, Other)
  Sender: FDA-Public Use
  Company Number: None

PATIENT
  Age: 64 Year
  Sex: Female
  Weight: 86.1834 kg

DRUGS (1)
  1. LISINOPRIL [Suspect]
     Indication: HYPERTENSION
     Dosage: 30MG 1 A DAY PILL

REACTIONS (7)
  - ALOPECIA [None]
  - DEPRESSION [None]
  - MYALGIA [None]
  - FATIGUE [None]
  - PRODUCT QUALITY ISSUE [None]
  - LOSS OF LIBIDO [None]
  - BACK PAIN [None]
